FAERS Safety Report 6763936-2 (Version None)
Quarter: 2010Q2

REPORT INFORMATION
  Report Type: 
  Country: None (occurrence: None)
  Receive Date: 20100608
  Receipt Date: 20100524
  Transmission Date: 20101027
  Serious: Yes (Hospitalization)
  Sender: FDA-Public Use
  Company Number: 2010002138

PATIENT
  Age: 76 Year
  Sex: Male

DRUGS (2)
  1. TARCEVA [Suspect]
     Indication: ADENOCARCINOMA PANCREAS
     Dosage: 1800 MG ORAL
     Route: 048
     Dates: start: 20100329
  2. GEMCITABINE HYDROCHLORIDE [Suspect]
     Indication: ADENOCARCINOMA PANCREAS
     Dosage: 5880 MG INTRAVENOUS
     Route: 042
     Dates: start: 20100329

REACTIONS (7)
  - BLOOD GLUCOSE INCREASED [None]
  - CHEILOSIS [None]
  - CONFUSIONAL STATE [None]
  - DEHYDRATION [None]
  - DRY MOUTH [None]
  - FATIGUE [None]
  - SOMNOLENCE [None]
